FAERS Safety Report 17503357 (Version 1)
Quarter: 2020Q1

REPORT INFORMATION
  Report Type: Spontaneous
  Country: US (occurrence: US)
  Receive Date: 20200305
  Receipt Date: 20200305
  Transmission Date: 20200409
  Serious: Yes (Death, Hospitalization, Other)
  Sender: FDA-Public Use
  Company Number: US-TEVA-2020-US-1193602

PATIENT
  Age: 12 Year
  Sex: Female

DRUGS (16)
  1. TEMAZEPAM. [Concomitant]
     Active Substance: TEMAZEPAM
     Route: 065
  2. IBUPROFEN. [Concomitant]
     Active Substance: IBUPROFEN
     Route: 065
  3. ESZOPICLONE. [Concomitant]
     Active Substance: ESZOPICLONE
     Route: 065
  4. MONTELUKAST [Concomitant]
     Active Substance: MONTELUKAST SODIUM
     Route: 065
  5. OXAZEPAM. [Concomitant]
     Active Substance: OXAZEPAM
     Route: 065
  6. HYDROCHLOROTHIAZIDE. [Concomitant]
     Active Substance: HYDROCHLOROTHIAZIDE
     Route: 065
  7. APAP [Concomitant]
     Active Substance: ACETAMINOPHEN
     Route: 065
  8. GABAPENTIN. [Suspect]
     Active Substance: GABAPENTIN
     Route: 048
  9. DIAZEPAM. [Suspect]
     Active Substance: DIAZEPAM
     Route: 048
  10. TRAMADOL. [Concomitant]
     Active Substance: TRAMADOL
     Route: 065
  11. CITALOPRAM [Suspect]
     Active Substance: CITALOPRAM HYDROBROMIDE
     Route: 048
  12. LOSARTAN. [Concomitant]
     Active Substance: LOSARTAN
     Route: 065
  13. ATOMOXETINE. [Concomitant]
     Active Substance: ATOMOXETINE HYDROCHLORIDE
     Route: 065
  14. NALOXONE [Suspect]
     Active Substance: NALOXONE
     Route: 065
  15. LORAZEPAM. [Concomitant]
     Active Substance: LORAZEPAM
     Route: 065
  16. FLUOXETINE [Concomitant]
     Active Substance: FLUOXETINE HYDROCHLORIDE
     Route: 065

REACTIONS (16)
  - Hypotension [Unknown]
  - Respiratory failure [Fatal]
  - Pyrexia [Not Recovered/Not Resolved]
  - Pulmonary oedema [Unknown]
  - Brain death [Not Recovered/Not Resolved]
  - Brain oedema [Unknown]
  - Pneumonia [Unknown]
  - Toxicity to various agents [Fatal]
  - Extrasystoles [Unknown]
  - Hypoxic-ischaemic encephalopathy [Fatal]
  - Clonus [Not Recovered/Not Resolved]
  - Acute kidney injury [Unknown]
  - Brain injury [Unknown]
  - Unresponsive to stimuli [Not Recovered/Not Resolved]
  - Brain herniation [Unknown]
  - Drug ineffective [Unknown]
